FAERS Safety Report 7272148-8 (Version None)
Quarter: 2011Q1

REPORT INFORMATION
  Report Type: 
  Country: None (occurrence: None)
  Receive Date: 20110203
  Receipt Date: 20110119
  Transmission Date: 20110831
  Serious: Yes (Hospitalization)
  Sender: FDA-Public Use
  Company Number: PHHY2011FR04900

PATIENT
  Sex: Male

DRUGS (2)
  1. LAMISIL [Suspect]
     Indication: PARONYCHIA
     Dosage: UNK
     Route: 048
     Dates: start: 20101110, end: 20101214
  2. INFLUENZA VACCINE [Suspect]
     Dates: start: 20101203, end: 20101203

REACTIONS (10)
  - PYREXIA [None]
  - GINGIVAL SWELLING [None]
  - TRISMUS [None]
  - TOOTHACHE [None]
  - AGRANULOCYTOSIS [None]
  - DYSKINESIA [None]
  - HEADACHE [None]
  - NECROTISING ULCERATIVE GINGIVOSTOMATITIS [None]
  - LYMPHADENOPATHY [None]
  - INFLUENZA LIKE ILLNESS [None]
